FAERS Safety Report 8523622-5 (Version None)
Quarter: 2012Q3

REPORT INFORMATION
  Report Type: 
  Country: None (occurrence: None)
  Receive Date: 20120720
  Receipt Date: 20120514
  Transmission Date: 20120928
  Serious: No
  Sender: FDA-Public Use
  Company Number: US-FOUGERA-2012FO001105

PATIENT
  Age: 68 Year
  Sex: Female
  Weight: 68.04 kg

DRUGS (1)
  1. ADAPALENE [Suspect]
     Indication: SKIN DISORDER
     Route: 061
     Dates: start: 20120201, end: 20120301

REACTIONS (4)
  - SCAR [None]
  - ACNE [None]
  - CONDITION AGGRAVATED [None]
  - DRUG INEFFECTIVE [None]
